FAERS Safety Report 17213811 (Version 1)
Quarter: 2020Q1

REPORT INFORMATION
  Report Type: Spontaneous
  Country: US (occurrence: US)
  Receive Date: 20191227
  Receipt Date: 20191227
  Transmission Date: 20200409
  Serious: Yes (Hospitalization)
  Sender: FDA-Public Use
  Company Number: None

PATIENT
  Age: 61 Year
  Sex: Female

DRUGS (10)
  1. AMTRIPTYLIN [Concomitant]
  2. OXYCODONE [Concomitant]
     Active Substance: OXYCODONE
  3. HYDROXYZINE [Concomitant]
     Active Substance: HYDROXYZINE HYDROCHLORIDE
  4. SUMATRIPTAN. [Concomitant]
     Active Substance: SUMATRIPTAN
  5. HUMIRA [Suspect]
     Active Substance: ADALIMUMAB
     Indication: RHEUMATOID ARTHRITIS
     Dosage: ?          OTHER FREQUENCY:EVERY OTHER WEEK;?
     Route: 058
     Dates: start: 20190912
  6. CALCIUM [Concomitant]
     Active Substance: CALCIUM
  7. MELATONIN [Concomitant]
     Active Substance: MELATONIN
  8. SENNA [Concomitant]
     Active Substance: SENNA LEAF\SENNOSIDES\SENNOSIDES A AND B
  9. DULOXETINE. [Concomitant]
     Active Substance: DULOXETINE
  10. PREGABALIN. [Concomitant]
     Active Substance: PREGABALIN

REACTIONS (4)
  - Therapy cessation [None]
  - Postoperative wound infection [None]
  - Rheumatoid arthritis [None]
  - Lower limb fracture [None]

NARRATIVE: CASE EVENT DATE: 20191103
